FAERS Safety Report 6543375-X (Version None)
Quarter: 2010Q1

REPORT INFORMATION
  Report Type: 
  Country: None (occurrence: None)
  Receive Date: 20100120
  Receipt Date: 20091207
  Transmission Date: 20100710
  Serious: Yes (Other)
  Sender: FDA-Public Use
  Company Number: US-SANOFI-AVENTIS-2010SA002158

PATIENT
  Sex: Male

DRUGS (2)
  1. OPTICLICK [Suspect]
     Dates: start: 20090601
  2. LANTUS [Suspect]
     Indication: TYPE 2 DIABETES MELLITUS
     Dosage: DOSE:20 UNIT(S)
     Route: 058
     Dates: start: 20080401

REACTIONS (1)
  - DEVICE MALFUNCTION [None]
